FAERS Safety Report 5901786-7 (Version None)
Quarter: 2008Q3

REPORT INFORMATION
  Report Type: 
  Country: None (occurrence: None)
  Receive Date: 20080926
  Receipt Date: 20080926
  Transmission Date: 20090109
  Serious: Yes (Other)
  Sender: FDA-Public Use
  Company Number: None

PATIENT
  Age: 41 Year
  Sex: Female
  Weight: 86.1834 kg

DRUGS (3)
  1. CYMBALTA [Suspect]
     Indication: DIABETES MELLITUS
     Dosage: 60MGS THEN 30MGS ONCE A DAY PO
     Route: 048
     Dates: start: 20060920, end: 20080918
  2. CYMBALTA [Suspect]
     Indication: FIBROMYALGIA
     Dosage: 60MGS THEN 30MGS ONCE A DAY PO
     Route: 048
     Dates: start: 20060920, end: 20080918
  3. CYMBALTA [Suspect]
     Indication: PAIN IN EXTREMITY
     Dosage: 60MGS THEN 30MGS ONCE A DAY PO
     Route: 048
     Dates: start: 20060920, end: 20080918

REACTIONS (7)
  - CRYING [None]
  - DIARRHOEA [None]
  - FEELING ABNORMAL [None]
  - MOOD SWINGS [None]
  - NAUSEA [None]
  - SYNCOPE [None]
  - WITHDRAWAL SYNDROME [None]
